FAERS Safety Report 13248141 (Version 1)
Quarter: 2017Q1

REPORT INFORMATION
  Report Type: Report from Study
  Country: CA (occurrence: CA)
  Receive Date: 20170217
  Receipt Date: 20170217
  Transmission Date: 20170428
  Serious: Yes (Other)
  Sender: FDA-Public Use
  Company Number: CA-GILEAD-2017-0258022

PATIENT
  Age: 44 Year
  Sex: Male

DRUGS (9)
  1. METOPROLOL                         /00376902/ [Concomitant]
     Active Substance: METOPROLOL
     Dosage: 50 MG, BID
  2. TECTA [Concomitant]
     Active Substance: PANTOPRAZOLE MAGNESIUM
     Dosage: 40 MG, QD
  3. CABERGOLINE. [Concomitant]
     Active Substance: CABERGOLINE
     Dosage: 1.5 MG ON MONDAY
  4. EMTRICITABINE/TENOFOVIR DISOPROXIL FUMARATE [Suspect]
     Active Substance: EMTRICITABINE\TENOFOVIR DISOPROXIL FUMARATE
     Indication: PRODUCT USED FOR UNKNOWN INDICATION
     Route: 065
  5. NEVIRAPINE. [Concomitant]
     Active Substance: NEVIRAPINE
  6. LIPITOR [Concomitant]
     Active Substance: ATORVASTATIN CALCIUM
     Dosage: 80 MG, QD
  7. PLAVIX [Concomitant]
     Active Substance: CLOPIDOGREL BISULFATE
     Dosage: 75 MG, QD
  8. SYNTHROID [Concomitant]
     Active Substance: LEVOTHYROXINE SODIUM
     Dosage: 88 UG, QD
  9. CABERGOLINE. [Concomitant]
     Active Substance: CABERGOLINE
     Dosage: 1 MG ON THURSDAY

REACTIONS (2)
  - Osteoporosis [Unknown]
  - Wrist fracture [Unknown]

NARRATIVE: CASE EVENT DATE: 2013
